FAERS Safety Report 4736247-4 (Version None)
Quarter: 2005Q3

REPORT INFORMATION
  Report Type: 
  Country: None (occurrence: None)
  Receive Date: 20050804
  Receipt Date: 20050804
  Transmission Date: 20060218
  Serious: Yes (Other)
  Sender: FDA-Public Use
  Company Number: None

PATIENT
  Sex: Male
  Weight: 62.6 kg

DRUGS (5)
  1. DOCETAXEL [Suspect]
     Indication: NON-SMALL CELL LUNG CANCER
     Dosage: SEE IMAGE
     Route: 042
     Dates: end: 20050714
  2. DOCETAXEL [Suspect]
     Indication: NON-SMALL CELL LUNG CANCER
     Dosage: SEE IMAGE
     Route: 042
     Dates: start: 20050728
  3. CISPLATIN [Suspect]
     Dosage: SEE IMAGE
     Dates: end: 20050714
  4. DARBEPOETIN ALFA [Suspect]
     Dosage: SEE IMAGE
     Route: 058
  5. PEGFILGRASTIN [Suspect]
     Dosage: SEE IMAGE
     Route: 058

REACTIONS (8)
  - DACRYOSTENOSIS ACQUIRED [None]
  - HYPERAESTHESIA [None]
  - HYPOAESTHESIA [None]
  - LACRIMATION INCREASED [None]
  - NEUROTOXICITY [None]
  - OCULAR TOXICITY [None]
  - PERIORBITAL OEDEMA [None]
  - POLYNEUROPATHY [None]
